FAERS Safety Report 18384256 (Version 1)
Quarter: 2020Q4

REPORT INFORMATION
  Report Type: Report from Study
  Country: FR (occurrence: FR)
  Receive Date: 20201014
  Receipt Date: 20201014
  Transmission Date: 20210114
  Serious: Yes (Death, Hospitalization)
  Sender: FDA-Public Use
  Company Number: FR-CELGENEUS-FRA-20201002894

PATIENT
  Age: 61 Year
  Sex: Male
  Weight: 82 kg

DRUGS (3)
  1. VALACICLOVIR [Concomitant]
     Active Substance: VALACYCLOVIR HYDROCHLORIDE
     Indication: PROPHYLAXIS
     Route: 065
     Dates: start: 2018
  2. TAMSULOSIN [Concomitant]
     Active Substance: TAMSULOSIN
     Indication: PROSTATITIS
     Route: 065
  3. IDHIFA [Suspect]
     Active Substance: ENASIDENIB MESYLATE
     Indication: ACUTE MYELOID LEUKAEMIA
     Dosage: 50 MILLIGRAM
     Route: 048
     Dates: start: 20200624, end: 20201004

REACTIONS (3)
  - Pancytopenia [Not Recovered/Not Resolved]
  - Acute myeloid leukaemia [Fatal]
  - Hyperleukocytosis [Not Recovered/Not Resolved]

NARRATIVE: CASE EVENT DATE: 20201001
